FAERS Safety Report 15542152 (Version 6)
Quarter: 2024Q2

REPORT INFORMATION
  Report Type: Spontaneous
  Country: CA (occurrence: CA)
  Receive Date: 20181023
  Receipt Date: 20240506
  Transmission Date: 20240716
  Serious: Yes (Other)
  Sender: FDA-Public Use
  Company Number: CA-TEVA-2018-CA-966573

PATIENT
  Age: 10 Year
  Sex: Male

DRUGS (8)
  1. RISPERIDONE [Suspect]
     Active Substance: RISPERIDONE
     Indication: Autism spectrum disorder
     Route: 065
  2. ATOMOXETINE [Concomitant]
     Active Substance: ATOMOXETINE\ATOMOXETINE HYDROCHLORIDE
     Indication: Autism spectrum disorder
     Route: 065
  3. ATOMOXETINE [Concomitant]
     Active Substance: ATOMOXETINE\ATOMOXETINE HYDROCHLORIDE
     Indication: Autism spectrum disorder
     Route: 065
  4. ARIPIPRAZOLE [Suspect]
     Active Substance: ARIPIPRAZOLE
     Indication: Autism spectrum disorder
     Route: 065
  5. METHYLPHENIDATE HYDROCHLORIDE [Suspect]
     Active Substance: METHYLPHENIDATE HYDROCHLORIDE
     Indication: Autism spectrum disorder
     Route: 065
  6. LISDEXAMFETAMINE [Suspect]
     Active Substance: LISDEXAMFETAMINE
     Indication: Autism spectrum disorder
     Route: 065
  7. ATOMOXETINE [Suspect]
     Active Substance: ATOMOXETINE\ATOMOXETINE HYDROCHLORIDE
     Indication: Autism spectrum disorder
     Route: 065
  8. LISDEXAMFETAMINE DIMESYLATE [Concomitant]
     Active Substance: LISDEXAMFETAMINE DIMESYLATE
     Indication: Autism spectrum disorder
     Route: 065

REACTIONS (8)
  - Condition aggravated [Unknown]
  - Weight increased [Unknown]
  - Headache [Unknown]
  - Irritability [Unknown]
  - Autism spectrum disorder [Unknown]
  - Condition aggravated [Unknown]
  - Weight increased [Unknown]
  - Autism spectrum disorder [Unknown]
